FAERS Safety Report 12650706 (Version 1)
Quarter: 2016Q3

REPORT INFORMATION
  Report Type: Spontaneous
  Country: US (occurrence: US)
  Receive Date: 20160815
  Receipt Date: 20160815
  Transmission Date: 20161109
  Serious: No
  Sender: FDA-Public Use
  Company Number: US-JAZZ-2016-US-004744

PATIENT
  Sex: Female

DRUGS (24)
  1. RITALIN [Concomitant]
     Active Substance: METHYLPHENIDATE HYDROCHLORIDE
  2. XYREM [Suspect]
     Active Substance: SODIUM OXYBATE
     Indication: NARCOLEPSY
     Dosage: 2.25 G, BID
     Route: 048
     Dates: start: 200809, end: 200810
  3. ZYRTEC [Concomitant]
     Active Substance: CETIRIZINE HYDROCHLORIDE
  4. XYREM [Suspect]
     Active Substance: SODIUM OXYBATE
     Dosage: 4.5 G, BID
     Route: 048
     Dates: start: 200812, end: 2009
  5. XYREM [Suspect]
     Active Substance: SODIUM OXYBATE
     Dosage: 2.25 G, BID
     Route: 048
     Dates: start: 201501, end: 201501
  6. TYLENOL WITH CODEINE [Concomitant]
     Active Substance: ACETAMINOPHEN\CODEINE PHOSPHATE
  7. PROZAC [Concomitant]
     Active Substance: FLUOXETINE HYDROCHLORIDE
  8. METAMUCIL [Concomitant]
     Active Substance: PLANTAGO SEED
  9. XYREM [Suspect]
     Active Substance: SODIUM OXYBATE
     Indication: CATAPLEXY
     Dosage: 3 G, BID
     Route: 048
     Dates: start: 200810, end: 200812
  10. XYREM [Suspect]
     Active Substance: SODIUM OXYBATE
     Dosage: 3 G, BID
     Route: 048
     Dates: start: 201501, end: 2015
  11. ASPIRIN. [Concomitant]
     Active Substance: ASPIRIN
  12. MICROLET [Concomitant]
  13. FLONASE [Concomitant]
     Active Substance: FLUTICASONE PROPIONATE
  14. LISINOPRIL. [Concomitant]
     Active Substance: LISINOPRIL
  15. PROVIGIL [Concomitant]
     Active Substance: MODAFINIL
  16. XYREM [Suspect]
     Active Substance: SODIUM OXYBATE
     Dosage: 4.5 G, BID
     Route: 048
     Dates: start: 201506
  17. BETADINE [Concomitant]
     Active Substance: POVIDONE-IODINE
  18. NORVASC [Concomitant]
     Active Substance: AMLODIPINE BESYLATE
  19. MUCINEX [Concomitant]
     Active Substance: GUAIFENESIN
  20. CONTOUR [Concomitant]
  21. MOBIC [Concomitant]
     Active Substance: MELOXICAM
  22. ALBUTEROL. [Concomitant]
     Active Substance: ALBUTEROL
  23. CALTRATE WITH VITAMIN D [Concomitant]
     Active Substance: CALCIUM CARBONATE\CHOLECALCIFEROL
  24. MULTIVITAMIN [Concomitant]
     Active Substance: VITAMINS

REACTIONS (2)
  - Hypnagogic hallucination [Unknown]
  - Sleep paralysis [Unknown]
